FAERS Safety Report 19209719 (Version 5)
Quarter: 2021Q4

REPORT INFORMATION
  Report Type: Spontaneous
  Country: PL (occurrence: PL)
  Receive Date: 20210504
  Receipt Date: 20211210
  Transmission Date: 20220303
  Serious: Yes (Other)
  Sender: FDA-Public Use
  Company Number: PL-JNJFOC-20210454298

PATIENT
  Age: 24 Year
  Sex: Female
  Weight: 75 kg

DRUGS (8)
  1. INFLIXIMAB [Suspect]
     Active Substance: INFLIXIMAB
     Indication: Product used for unknown indication
     Route: 042
     Dates: start: 2008, end: 2010
  2. SECUKINUMAB [Suspect]
     Active Substance: SECUKINUMAB
     Indication: Psoriasis
     Route: 065
  3. ADALIMUMAB [Suspect]
     Active Substance: ADALIMUMAB
     Indication: Product used for unknown indication
     Route: 065
     Dates: start: 201002, end: 201005
  4. CYCLOSPORINE [Suspect]
     Active Substance: CYCLOSPORINE
     Indication: Product used for unknown indication
     Route: 065
  5. METHOTREXATE [Suspect]
     Active Substance: METHOTREXATE
     Indication: Psoriatic arthropathy
     Route: 048
  6. METHOTREXATE [Suspect]
     Active Substance: METHOTREXATE
     Indication: Psoriatic arthropathy
     Route: 058
  7. ENBREL [Suspect]
     Active Substance: ETANERCEPT
     Indication: Product used for unknown indication
     Route: 065
  8. ADALIMUMAB [Suspect]
     Active Substance: ADALIMUMAB
     Indication: Product used for unknown indication
     Route: 065
     Dates: start: 201002, end: 201005

REACTIONS (11)
  - Gastrointestinal haemorrhage [Unknown]
  - Psoriatic arthropathy [Unknown]
  - Leukopenia [Unknown]
  - Joint swelling [Recovered/Resolved]
  - Asthenia [Unknown]
  - Skin lesion [Recovered/Resolved]
  - Urinary tract infection [Unknown]
  - Arthralgia [Recovered/Resolved]
  - Psoriasis [Unknown]
  - Pyrexia [Unknown]
  - Drug ineffective [Unknown]
